FAERS Safety Report 22074135 (Version 5)
Quarter: 2023Q4

REPORT INFORMATION
  Report Type: Other
  Country: GB (occurrence: None)
  Receive Date: 20230308
  Receipt Date: 20231122
  Transmission Date: 20240110
  Serious: No
  Sender: FDA-Public Use
  Company Number: GB-ROCHE-3298877

PATIENT
  Age: 54 Year
  Sex: Male
  Weight: 69 kg

DRUGS (24)
  1. OCRELIZUMAB [Suspect]
     Active Substance: OCRELIZUMAB
     Indication: Primary progressive multiple sclerosis
     Route: 042
     Dates: start: 20191106, end: 20191106
  2. OCRELIZUMAB [Suspect]
     Active Substance: OCRELIZUMAB
     Route: 042
     Dates: start: 20220614, end: 20220614
  3. OCRELIZUMAB [Suspect]
     Active Substance: OCRELIZUMAB
     Route: 042
     Dates: start: 20210518, end: 20210518
  4. OCRELIZUMAB [Suspect]
     Active Substance: OCRELIZUMAB
     Route: 042
     Dates: start: 20230228, end: 20230228
  5. OCRELIZUMAB [Suspect]
     Active Substance: OCRELIZUMAB
     Route: 042
     Dates: start: 20191120, end: 20191120
  6. LAQUINIMOD [Concomitant]
     Active Substance: LAQUINIMOD
     Dates: start: 2015, end: 2017
  7. METHYLPREDNISOLONE [Concomitant]
     Active Substance: METHYLPREDNISOLONE
     Route: 042
     Dates: start: 20191106, end: 20191106
  8. METHYLPREDNISOLONE [Concomitant]
     Active Substance: METHYLPREDNISOLONE
     Dosage: SUBSEUENT DOSES ON 14/JUN/2022 AND 18/MAY/2021
     Route: 042
     Dates: start: 20191120, end: 20191120
  9. METHYLPREDNISOLONE [Concomitant]
     Active Substance: METHYLPREDNISOLONE
     Route: 042
     Dates: start: 20220614, end: 20220614
  10. CHLORPHENIRAMINE MALEATE [Concomitant]
     Active Substance: CHLORPHENIRAMINE MALEATE
     Dosage: SUBSEQUENT INFUSION ON 06/NOV/2019 AND 14/JUN/2022, 18/MAY/2021
     Route: 042
     Dates: start: 20191120, end: 20191120
  11. CHLORPHENIRAMINE MALEATE [Concomitant]
     Active Substance: CHLORPHENIRAMINE MALEATE
     Route: 042
     Dates: start: 20220614, end: 20220614
  12. ACETAMINOPHEN [Concomitant]
     Active Substance: ACETAMINOPHEN
     Dosage: SUBSEQUENT DOSES ON 18/MAY/2021, 06/NOV/2019 AND 14/JUN/2022
     Route: 048
     Dates: start: 20191120, end: 20191120
  13. ACETAMINOPHEN [Concomitant]
     Active Substance: ACETAMINOPHEN
     Route: 048
     Dates: start: 20220614, end: 20220614
  14. GABAPENTIN [Concomitant]
     Active Substance: GABAPENTIN
  15. VIAGRA [Concomitant]
     Active Substance: SILDENAFIL CITRATE
  16. VITAMIN D3 [Concomitant]
     Active Substance: CHOLECALCIFEROL
     Indication: Product used for unknown indication
  17. AMITRIPTYLINE [Concomitant]
     Active Substance: AMITRIPTYLINE
  18. AMANTADINE [Concomitant]
     Active Substance: AMANTADINE
  19. PREDNISOLONE [Concomitant]
     Active Substance: PREDNISOLONE
     Route: 048
     Dates: start: 202004
  20. ASTRAZENECA COVID-19 VACCINE [Concomitant]
     Active Substance: AZD-1222
     Dosage: SUBSEQUENT DOSE ON :19/MAR/2021
     Route: 030
     Dates: start: 20210206, end: 20210206
  21. GABAPENTIN [Concomitant]
     Active Substance: GABAPENTIN
     Route: 048
     Dates: start: 202112
  22. COMIRNATY (TOZINAMERAN) [Concomitant]
     Active Substance: TOZINAMERAN
     Dosage: SUBSEQUENT DOSES ON 11/JAN/2022
     Route: 030
     Dates: start: 20211002, end: 20211002
  23. TIZANIDINE [Concomitant]
     Active Substance: TIZANIDINE
     Route: 048
     Dates: start: 202111, end: 202112
  24. TIZANIDINE [Concomitant]
     Active Substance: TIZANIDINE
     Route: 048
     Dates: start: 202112, end: 202201

REACTIONS (1)
  - COVID-19 [Recovered/Resolved]

NARRATIVE: CASE EVENT DATE: 20220701
